FAERS Safety Report 5196402-9 (Version None)
Quarter: 2006Q4

REPORT INFORMATION
  Report Type: 
  Country: None (occurrence: None)
  Receive Date: 20061222
  Receipt Date: 20061218
  Transmission Date: 20070319
  Serious: Yes (Hospitalization)
  Sender: FDA-Public Use
  Company Number: 234003

PATIENT
  Age: 49 Year
  Sex: Female

DRUGS (2)
  1. XOLAIR [Suspect]
     Indication: DRUG USE FOR UNKNOWN INDICATION
     Dosage: 150 MG, Q4WK
     Dates: start: 20061108
  2. ANTIBIOTICS (NOT SPECIFIED) (ANTIBIOTICS NOS) [Concomitant]

REACTIONS (2)
  - DIARRHOEA [None]
  - VOMITING [None]
